FAERS Safety Report 5259672-4 (Version None)
Quarter: 2007Q1

REPORT INFORMATION
  Report Type: 
  Country: None (occurrence: None)
  Receive Date: 20070307
  Receipt Date: 20070307
  Transmission Date: 20070707
  Serious: Yes (Hospitalization)
  Sender: FDA-Public Use
  Company Number: None

PATIENT
  Age: 54 Year
  Sex: Male
  Weight: 82.1 kg

DRUGS (1)
  1. WARFARIN SODIUM [Suspect]
     Indication: DEEP VEIN THROMBOSIS
     Dosage: 2 MG TU/WE/FR/SA/SU, 1MG MO, TH DAILY PO
     Route: 048

REACTIONS (7)
  - DRUG ABUSER [None]
  - FALL [None]
  - HEAD INJURY [None]
  - INTERNATIONAL NORMALISED RATIO INCREASED [None]
  - LIMB INJURY [None]
  - PAIN IN EXTREMITY [None]
  - SKIN HAEMORRHAGE [None]
